FAERS Safety Report 19078223 (Version 2)
Quarter: 2021Q3

REPORT INFORMATION
  Report Type: Spontaneous
  Country: US (occurrence: US)
  Receive Date: 20210331
  Receipt Date: 20210723
  Transmission Date: 20211014
  Serious: Yes (Hospitalization, Disabling)
  Sender: FDA-Public Use
  Company Number: US-TEVA-2021-US-1895514

PATIENT
  Age: 70 Year
  Sex: Male
  Weight: 87.62 kg

DRUGS (1)
  1. METHYLPREDNISOLONE ACETATE TEVA [Suspect]
     Active Substance: METHYLPREDNISOLONE ACETATE
     Indication: OSTEOARTHRITIS
     Dosage: ONCE
     Route: 014
     Dates: start: 20191220, end: 20191220

REACTIONS (4)
  - Joint injury [Unknown]
  - Osteoarthritis [Unknown]
  - Recalled product administered [Unknown]
  - Arthritis bacterial [Recovering/Resolving]
